FAERS Safety Report 6097941-9 (Version None)
Quarter: 2009Q1

REPORT INFORMATION
  Report Type: 
  Country: None (occurrence: None)
  Receive Date: 20090227
  Receipt Date: 20090220
  Transmission Date: 20090719
  Serious: Yes (Life-Threatening, Hospitalization)
  Sender: FDA-Public Use
  Company Number: US-GENENTECH-277884

PATIENT
  Sex: Female

DRUGS (18)
  1. OMALIZUMAB [Suspect]
     Indication: ASTHMA
     Dosage: UNK
     Route: 058
     Dates: start: 20071007
  2. ADVAIR HFA [Concomitant]
     Indication: DRUG USE FOR UNKNOWN INDICATION
  3. SPIRIVA [Concomitant]
     Indication: DRUG USE FOR UNKNOWN INDICATION
  4. PROVENTIL [Concomitant]
     Indication: DRUG USE FOR UNKNOWN INDICATION
  5. ALBUTEROL [Concomitant]
     Indication: DRUG USE FOR UNKNOWN INDICATION
  6. IPRATROPIUM BROMIDE [Concomitant]
     Indication: DRUG USE FOR UNKNOWN INDICATION
  7. HUMALOG [Concomitant]
     Indication: DRUG USE FOR UNKNOWN INDICATION
  8. MEDROL [Concomitant]
     Indication: DRUG USE FOR UNKNOWN INDICATION
  9. PREDNISONE [Concomitant]
     Indication: DRUG USE FOR UNKNOWN INDICATION
  10. DICYCLOMINE [Concomitant]
     Indication: DRUG USE FOR UNKNOWN INDICATION
  11. ATROPINE [Concomitant]
     Indication: DRUG USE FOR UNKNOWN INDICATION
  12. NITROGLYCERIN [Concomitant]
     Indication: DRUG USE FOR UNKNOWN INDICATION
  13. PRIMIDONE [Concomitant]
     Indication: DRUG USE FOR UNKNOWN INDICATION
  14. LYRICA [Concomitant]
     Indication: DRUG USE FOR UNKNOWN INDICATION
  15. METFORMIN [Concomitant]
     Indication: DRUG USE FOR UNKNOWN INDICATION
  16. KLOR-CON [Concomitant]
     Indication: DRUG USE FOR UNKNOWN INDICATION
  17. TRICOR [Concomitant]
     Indication: DRUG USE FOR UNKNOWN INDICATION
  18. LASIX [Concomitant]
     Indication: DRUG USE FOR UNKNOWN INDICATION

REACTIONS (1)
  - LUNG INFECTION [None]
